FAERS Safety Report 6845923-9 (Version None)
Quarter: 2010Q3

REPORT INFORMATION
  Report Type: 
  Country: None (occurrence: None)
  Receive Date: 20100715
  Receipt Date: 20070829
  Transmission Date: 20110219
  Serious: Yes (Other)
  Sender: FDA-Public Use
  Company Number: US-PFIZER INC-2007073549

PATIENT

DRUGS (1)
  1. CHANTIX [Suspect]

REACTIONS (1)
  - DYSPNOEA [None]
